FAERS Safety Report 20120824 (Version 4)
Quarter: 2022Q4

REPORT INFORMATION
  Report Type: Spontaneous
  Country: CA (occurrence: CA)
  Receive Date: 20211126
  Receipt Date: 20221006
  Transmission Date: 20230113
  Serious: Yes (Hospitalization)
  Sender: FDA-Public Use
  Company Number: CA-SAMSUNG BIOEPIS-SB-2021-27342

PATIENT
  Age: 64 Year
  Sex: Male
  Weight: 51 kg

DRUGS (10)
  1. INFLIXIMAB [Suspect]
     Active Substance: INFLIXIMAB
     Indication: Crohn^s disease
     Route: 042
  2. MESALAMINE [Concomitant]
     Active Substance: MESALAMINE
     Indication: Product used for unknown indication
     Dosage: DOSAGE FORM: TABLET (ENTERIC COATED)
     Route: 054
  3. AZATHIOPRINE [Concomitant]
     Active Substance: AZATHIOPRINE
     Indication: Product used for unknown indication
     Route: 048
  4. CALCIUM CARBONATE [Concomitant]
     Active Substance: CALCIUM CARBONATE
     Indication: Product used for unknown indication
     Route: 048
  5. CIPROFLOXACIN HYDROCHLORIDE [Concomitant]
     Active Substance: CIPROFLOXACIN HYDROCHLORIDE
     Indication: Bacterial infection
     Route: 065
  6. HYDROCORTISONE [HYDROCORTISONE SODIUM SUCCINATE] [Concomitant]
     Indication: Product used for unknown indication
     Route: 054
  7. METRONIDAZOLE [Concomitant]
     Active Substance: METRONIDAZOLE
     Indication: Product used for unknown indication
     Route: 048
  8. PREDNISONE [Concomitant]
     Active Substance: PREDNISONE
     Indication: Product used for unknown indication
     Dosage: UNKNOWN
     Route: 042
  9. PREDNISONE [Concomitant]
     Active Substance: PREDNISONE
     Dosage: UNKNOWN
     Route: 048
  10. VITAMIN D3 [Concomitant]
     Active Substance: CHOLECALCIFEROL
     Indication: Product used for unknown indication
     Route: 048

REACTIONS (12)
  - Abdominal distension [Not Recovered/Not Resolved]
  - Arthralgia [Not Recovered/Not Resolved]
  - Condition aggravated [Not Recovered/Not Resolved]
  - Disease recurrence [Not Recovered/Not Resolved]
  - Nausea [Not Recovered/Not Resolved]
  - Gastrointestinal bacterial infection [Not Recovered/Not Resolved]
  - Crohn^s disease [Not Recovered/Not Resolved]
  - Blood pressure increased [Not Recovered/Not Resolved]
  - Weight increased [Not Recovered/Not Resolved]
  - Weight decreased [Not Recovered/Not Resolved]
  - Intentional product use issue [Not Recovered/Not Resolved]
  - Off label use [Not Recovered/Not Resolved]
